FAERS Safety Report 10353251 (Version 2)
Quarter: 2014Q3

REPORT INFORMATION
  Report Type: Spontaneous
  Country: FR (occurrence: FR)
  Receive Date: 20140730
  Receipt Date: 20140925
  Transmission Date: 20150326
  Serious: Yes (Life-Threatening, Other)
  Sender: FDA-Public Use
  Company Number: FR-AMGEN INC.-FRASP2014057494

PATIENT
  Age: 62 Year
  Sex: Male
  Weight: 60 kg

DRUGS (4)
  1. LANZOR [Concomitant]
     Active Substance: LANSOPRAZOLE
     Indication: RHEUMATOID ARTHRITIS
     Dosage: UNK
     Route: 048
     Dates: start: 20000101
  2. FELDENE [Concomitant]
     Active Substance: PIROXICAM
     Indication: RHEUMATOID ARTHRITIS
     Dosage: UNK
     Route: 048
     Dates: start: 20000101
  3. DOLIPRANE [Concomitant]
     Active Substance: ACETAMINOPHEN
     Indication: RHEUMATOID ARTHRITIS
     Dosage: UNK
     Route: 048
     Dates: start: 20000101
  4. ENBREL [Suspect]
     Active Substance: ETANERCEPT
     Indication: RHEUMATOID ARTHRITIS
     Dosage: 25 MG, WEEKLY
     Route: 058
     Dates: start: 2004, end: 20140601

REACTIONS (2)
  - Epstein-Barr virus test positive [Unknown]
  - Thrombocytopenia [Recovered/Resolved]

NARRATIVE: CASE EVENT DATE: 20140601
